FAERS Safety Report 9768912 (Version 2)
Quarter: 2014Q1

REPORT INFORMATION
  Report Type: Spontaneous
  Country: US (occurrence: US)
  Receive Date: 20131218
  Receipt Date: 20140124
  Transmission Date: 20141002
  Serious: Yes (Hospitalization)
  Sender: FDA-Public Use
  Company Number: US-ASTRAZENECA-2013SE90148

PATIENT
  Age: 82 Year
  Sex: Female
  Weight: 62.1 kg

DRUGS (11)
  1. LISINOPRIL [Suspect]
     Route: 048
  2. PRILOSEC [Suspect]
     Indication: GASTROOESOPHAGEAL REFLUX DISEASE
     Route: 048
     Dates: end: 201212
  3. BRILINTA [Suspect]
     Indication: STENT PLACEMENT
     Route: 048
     Dates: start: 201304
  4. PRILOSEC OTC [Suspect]
     Indication: GASTROOESOPHAGEAL REFLUX DISEASE
     Route: 048
     Dates: end: 201212
  5. LIPITOR [Suspect]
     Indication: BLOOD CHOLESTEROL ABNORMAL
     Route: 048
     Dates: start: 201212
  6. LOW DOSE ASPIRIN [Concomitant]
     Indication: ADJUVANT THERAPY
     Route: 048
  7. LOW DOSE ASPIRIN [Concomitant]
     Indication: ADJUVANT THERAPY
     Dosage: LOW DOSE, DAILY
     Route: 048
     Dates: start: 201304
  8. LOMOTIL [Concomitant]
     Indication: DIARRHOEA
     Dosage: UNKNOWN PRN
     Route: 048
  9. PROTONIX [Concomitant]
     Indication: GASTROOESOPHAGEAL REFLUX DISEASE
     Route: 048
     Dates: start: 201212
  10. VYSTOLIC [Concomitant]
     Route: 048
  11. VITAMINS [Concomitant]
     Dosage: UNKNOWN DAILY
     Route: 048

REACTIONS (16)
  - Rectal haemorrhage [Recovered/Resolved]
  - Haemorrhage [Unknown]
  - Gait disturbance [Unknown]
  - Malaise [Not Recovered/Not Resolved]
  - Nasal congestion [Unknown]
  - Multiple allergies [Unknown]
  - Balance disorder [Unknown]
  - Coordination abnormal [Unknown]
  - Weight decreased [Unknown]
  - Diarrhoea [Not Recovered/Not Resolved]
  - Fatigue [Not Recovered/Not Resolved]
  - Asthenia [Not Recovered/Not Resolved]
  - Dizziness [Not Recovered/Not Resolved]
  - Vertigo [Unknown]
  - Fatigue [Unknown]
  - Rhinitis [Unknown]
